FAERS Safety Report 10855022 (Version 1)
Quarter: 2015Q1

REPORT INFORMATION
  Report Type: Spontaneous
  Country: US (occurrence: US)
  Receive Date: 20150223
  Receipt Date: 20150223
  Transmission Date: 20150721
  Serious: Yes (Death)
  Sender: FDA-Public Use
  Company Number: US-INCYTE CORPORATION-2015IN000679

PATIENT
  Age: 70 Year
  Sex: Male

DRUGS (18)
  1. ASPIRIN. [Concomitant]
     Active Substance: ASPIRIN
  2. PROBIOTICS [Concomitant]
     Active Substance: PROBIOTICS NOS
  3. IRON [Concomitant]
     Active Substance: IRON
  4. JAKAFI [Suspect]
     Active Substance: RUXOLITINIB
     Dosage: 20 MG, BID
     Route: 048
     Dates: start: 20141029
  5. CLONAZEPAM. [Concomitant]
     Active Substance: CLONAZEPAM
  6. FENOFIBRATE. [Concomitant]
     Active Substance: FENOFIBRATE
  7. FUROSEMIDE. [Concomitant]
     Active Substance: FUROSEMIDE
  8. INSULIN [Concomitant]
     Active Substance: INSULIN NOS
  9. LOVASTATIN. [Concomitant]
     Active Substance: LOVASTATIN
  10. KRILLBERRY [Concomitant]
  11. DIPHENOXYLATE [Concomitant]
     Active Substance: DIPHENOXYLATE
  12. VERAPAMIL [Concomitant]
     Active Substance: VERAPAMIL HYDROCHLORIDE
  13. SILDENAFIL. [Concomitant]
     Active Substance: SILDENAFIL
  14. VITAMIN B12 [Concomitant]
     Active Substance: CYANOCOBALAMIN
  15. LEVEMIR [Concomitant]
     Active Substance: INSULIN DETEMIR
  16. PRAMIPEXOLE [Concomitant]
     Active Substance: PRAMIPEXOLE
  17. QUNOL [Concomitant]
  18. MAGNESIUM OXIDE. [Concomitant]
     Active Substance: MAGNESIUM OXIDE

REACTIONS (1)
  - Death [Fatal]

NARRATIVE: CASE EVENT DATE: 20150105
